FAERS Safety Report 7242126-3 (Version None)
Quarter: 2011Q1

REPORT INFORMATION
  Report Type: 
  Country: None (occurrence: None)
  Receive Date: 20110118
  Receipt Date: 20110110
  Transmission Date: 20110831
  Serious: Yes (Death, Hospitalization, Other)
  Sender: FDA-Public Use
  Company Number: 2011AC000002

PATIENT
  Sex: Male

DRUGS (23)
  1. MULTIVITAMIN [Concomitant]
  2. IRON [Concomitant]
  3. DIGOXIN [Suspect]
     Dosage: 0.125 MG; PO
     Route: 048
     Dates: start: 20080101
  4. ZESTRIL [Concomitant]
  5. LASIX [Concomitant]
  6. MAGNESIUM [Concomitant]
  7. NAMENDA [Concomitant]
  8. BILBERRY SUPPLEMENT [Concomitant]
  9. ALPRAZOLAM [Concomitant]
  10. ASPIRIN [Concomitant]
  11. AMIODARONE [Concomitant]
  12. LIPITOR [Concomitant]
  13. LUPRON [Concomitant]
  14. ZOMETA [Concomitant]
  15. FOSAMAX [Concomitant]
  16. METOPROLOL TARTRATE [Concomitant]
  17. ARICEPT [Concomitant]
  18. POTASSIUM [Concomitant]
  19. LEXAPRO [Concomitant]
  20. ZOLADEX [Concomitant]
  21. CASODEX [Concomitant]
  22. DIGOXIN [Suspect]
     Indication: TACHYCARDIA
     Dosage: 0.125 MG; QD; PO
     Route: 048
     Dates: start: 20010101
  23. LUPRON [Concomitant]

REACTIONS (46)
  - BUNDLE BRANCH BLOCK LEFT [None]
  - CARDIAC FAILURE [None]
  - CONTUSION [None]
  - AGITATION [None]
  - DIZZINESS POSTURAL [None]
  - LEFT VENTRICULAR DYSFUNCTION [None]
  - MYOCARDIAL INFARCTION [None]
  - FATIGUE [None]
  - OEDEMA [None]
  - BACK PAIN [None]
  - ANEURYSM [None]
  - NAUSEA [None]
  - PROSTATIC SPECIFIC ANTIGEN INCREASED [None]
  - BLOOD UREA INCREASED [None]
  - BLOOD ALKALINE PHOSPHATASE INCREASED [None]
  - ASTHENIA [None]
  - ANAEMIA [None]
  - HYPOTHYROIDISM [None]
  - CONFUSIONAL STATE [None]
  - INJURY [None]
  - SENSATION OF HEAVINESS [None]
  - DYSURIA [None]
  - JOINT SWELLING [None]
  - ORTHOPNOEA [None]
  - POLLAKIURIA [None]
  - DEPRESSION [None]
  - PAIN [None]
  - CARDIAC FLUTTER [None]
  - VENTRICULAR TACHYCARDIA [None]
  - HEADACHE [None]
  - DIZZINESS [None]
  - BLOOD PRESSURE DECREASED [None]
  - OSTEOPENIA [None]
  - MEMORY IMPAIRMENT [None]
  - WHEEZING [None]
  - ARTERIOSCLEROSIS CORONARY ARTERY [None]
  - LIVER FUNCTION TEST ABNORMAL [None]
  - OBSTRUCTIVE AIRWAYS DISORDER [None]
  - ABDOMINAL DISCOMFORT [None]
  - ATRIOVENTRICULAR BLOCK FIRST DEGREE [None]
  - PERICARDIAL EFFUSION [None]
  - WEIGHT DECREASED [None]
  - SINUS BRADYCARDIA [None]
  - BLOOD CREATININE INCREASED [None]
  - OEDEMA PERIPHERAL [None]
  - COUGH [None]
